FAERS Safety Report 19948828 (Version 1)
Quarter: 2021Q4

REPORT INFORMATION
  Report Type: Spontaneous
  Country: US (occurrence: US)
  Receive Date: 20211008
  Receipt Date: 20211008
  Transmission Date: 20220303
  Serious: Yes (Death)
  Sender: FDA-Public Use
  Company Number: None

PATIENT
  Age: 58 Year
  Sex: Female

DRUGS (1)
  1. VERZENIO [Suspect]
     Active Substance: ABEMACICLIB
     Indication: Neoplasm malignant
     Dosage: TAKE 1 TABLET ORALLY 2 TIMES DAILY AT APPROXIMATELY THE SAME TIMES DAILY
     Route: 048
     Dates: start: 20200317, end: 20210918

REACTIONS (1)
  - Death [None]

NARRATIVE: CASE EVENT DATE: 20210918
